FAERS Safety Report 18224696 (Version 1)
Quarter: 2020Q3

REPORT INFORMATION
  Report Type: Spontaneous
  Country: US (occurrence: US)
  Receive Date: 20200902
  Receipt Date: 20200902
  Transmission Date: 20201103
  Serious: Yes (Other)
  Sender: FDA-Public Use
  Company Number: US-GILEAD-2020-0491406

PATIENT
  Sex: Male

DRUGS (4)
  1. TADALAFIL. [Suspect]
     Active Substance: TADALAFIL
     Indication: SEXUAL DYSFUNCTION
     Dosage: 5 MG, QD
     Route: 065
     Dates: start: 20200813, end: 20200815
  2. GENVOYA [Suspect]
     Active Substance: COBICISTAT\ELVITEGRAVIR\EMTRICITABINE\TENOFOVIR ALAFENAMIDE FUMARATE
     Indication: HIV INFECTION
     Route: 065
  3. UROGENX [Concomitant]
     Route: 065
  4. BETTER STRENGTH MAX BOOST [Concomitant]
     Route: 065

REACTIONS (6)
  - Nausea [Not Recovered/Not Resolved]
  - Ill-defined disorder [Unknown]
  - Angina pectoris [Unknown]
  - Somnolence [Unknown]
  - Feeling jittery [Unknown]
  - Headache [Not Recovered/Not Resolved]

NARRATIVE: CASE EVENT DATE: 20200813
